FAERS Safety Report 26097333 (Version 1)
Quarter: 2025Q4

REPORT INFORMATION
  Report Type: Spontaneous
  Country: EU (occurrence: EU)
  Receive Date: 20251127
  Receipt Date: 20251127
  Transmission Date: 20260118
  Serious: Yes (Other)
  Sender: ASTELLAS
  Company Number: EU-ASTELLAS-2025-AER-065128

PATIENT
  Age: 52 Year
  Sex: Male

DRUGS (4)
  1. GILTERITINIB [Suspect]
     Active Substance: GILTERITINIB
     Indication: Acute myelomonocytic leukaemia
     Route: 065
     Dates: start: 202306, end: 202508
  2. CSA [Concomitant]
     Indication: Rash pruritic
     Dosage: START TAPPERING OF CSA 25% WEEKLY
     Route: 065
     Dates: start: 202305
  3. CSA [Concomitant]
     Route: 065
     Dates: start: 202302
  4. BECLOMETHASONE [Concomitant]
     Active Substance: BECLOMETHASONE
     Indication: Rash pruritic
     Route: 065
     Dates: start: 202302

REACTIONS (6)
  - Respiratory failure [Unknown]
  - Circulatory collapse [Unknown]
  - Pancytopenia [Unknown]
  - General physical health deterioration [Unknown]
  - Disorientation [Unknown]
  - Pyrexia [Unknown]

NARRATIVE: CASE EVENT DATE: 20231101
